FAERS Safety Report 21185670 (Version 4)
Quarter: 2022Q3

REPORT INFORMATION
  Report Type: Spontaneous
  Country: US (occurrence: US)
  Receive Date: 20220808
  Receipt Date: 20220926
  Transmission Date: 20221027
  Serious: Yes (Other)
  Sender: FDA-Public Use
  Company Number: US-SA-SAC20220803000013

PATIENT
  Age: 50 Year
  Sex: Female

DRUGS (1)
  1. DUPIXENT [Suspect]
     Active Substance: DUPILUMAB
     Indication: Autoimmune blistering disease
     Dosage: 300 MG, FREQUENCY: OTHER
     Route: 058
     Dates: start: 202203

REACTIONS (4)
  - Chronic kidney disease [Unknown]
  - Blood creatinine increased [Unknown]
  - Blood urea increased [Unknown]
  - Product use in unapproved indication [Unknown]
